FAERS Safety Report 20594483 (Version 3)
Quarter: 2022Q2

REPORT INFORMATION
  Report Type: Report from Study
  Country: US (occurrence: US)
  Receive Date: 20220315
  Receipt Date: 20220517
  Transmission Date: 20220721
  Serious: Yes (Other)
  Sender: FDA-Public Use
  Company Number: US-UCBSA-2022013292

PATIENT
  Sex: Male

DRUGS (1)
  1. CERTOLIZUMAB PEGOL [Suspect]
     Active Substance: CERTOLIZUMAB PEGOL
     Indication: Product used for unknown indication
     Dosage: 400 MILLIGRAM, EV 2 WEEKS(QOW)
     Route: 058
     Dates: start: 202202, end: 202202

REACTIONS (6)
  - Spinal stenosis [Not Recovered/Not Resolved]
  - Renal cancer [Not Recovered/Not Resolved]
  - Elbow operation [Not Recovered/Not Resolved]
  - Feeling abnormal [Recovered/Resolved]
  - Back pain [Not Recovered/Not Resolved]
  - Compression fracture [Not Recovered/Not Resolved]

NARRATIVE: CASE EVENT DATE: 20220101
